FAERS Safety Report 20912343 (Version 1)
Quarter: 2022Q2

REPORT INFORMATION
  Report Type: Spontaneous
  Country: US (occurrence: US)
  Receive Date: 20220603
  Receipt Date: 20220603
  Transmission Date: 20220721
  Serious: Yes (Hospitalization, Other)
  Sender: FDA-Public Use
  Company Number: US-CORCEPT THERAPEUTICS INC.-US-2022CRT000862

PATIENT
  Age: 31 Year
  Sex: Female

DRUGS (4)
  1. MIFEPRISTONE [Suspect]
     Active Substance: MIFEPRISTONE
     Indication: Abortion induced
     Dosage: UNK
  2. MISOPROSTOL [Suspect]
     Active Substance: MISOPROSTOL
     Indication: Abortion induced
     Dosage: UNK
  3. GLARGINE BIOCON [Concomitant]
     Indication: Type 1 diabetes mellitus
     Dosage: 12 UNITS AT BED TIME
  4. INSULIN LISPRO [Concomitant]
     Active Substance: INSULIN LISPRO
     Indication: Type 1 diabetes mellitus
     Dosage: 5-10 UNITS BEFORE MEALS

REACTIONS (2)
  - Diabetic ketoacidosis [Recovering/Resolving]
  - Vaginal haemorrhage [Unknown]
